FAERS Safety Report 5557296-2 (Version None)
Quarter: 2007Q4

REPORT INFORMATION
  Report Type: 
  Country: None (occurrence: None)
  Receive Date: 20071214
  Receipt Date: 20071212
  Transmission Date: 20080405
  Serious: Yes (Other)
  Sender: FDA-Public Use
  Company Number: FR-BRISTOL-MYERS SQUIBB COMPANY-14009807

PATIENT
  Age: 48 Year
  Sex: Female

DRUGS (1)
  1. TRIAMCINOLONE ACETONIDE [Suspect]
     Indication: DIABETIC RETINAL OEDEMA
     Dosage: ROUTE: INTRAVITREAL.ALSO RECEIVED FURTHER 3 INJ AT 6MONTH INTERVALS.
     Route: 031

REACTIONS (1)
  - MACULAR HOLE [None]
